FAERS Safety Report 8840278 (Version 1)
Quarter: 2012Q4

REPORT INFORMATION
  Report Type: 
  Country: US (occurrence: US)
  Receive Date: 20121015
  Receipt Date: 20121015
  Transmission Date: 20130627
  Serious: No
  Sender: FDA-Public Use
  Company Number: US-BAYER-2012-104861

PATIENT
  Age: 73 Year
  Sex: Female
  Weight: 95.24 kg

DRUGS (8)
  1. ALEVE CAPLET/TABLET,MIDOL EXTENDED RELIEF CAPLET [Suspect]
     Indication: BACK PAIN
     Dosage: 4 DF, BID
     Route: 048
     Dates: start: 2008
  2. MIRAPEX [Concomitant]
  3. SIMVASTATIN [Concomitant]
  4. METFORMIN [Concomitant]
  5. NIACIN [Concomitant]
  6. FISH OIL [Concomitant]
  7. VITAMINS [Concomitant]
  8. ASPIRIN [Concomitant]

REACTIONS (1)
  - No adverse event [None]
